FAERS Safety Report 4699657-X (Version None)
Quarter: 2005Q2

REPORT INFORMATION
  Report Type: 
  Country: None (occurrence: None)
  Receive Date: 20050204
  Receipt Date: 20050204
  Transmission Date: 20051028
  Serious: No
  Sender: FDA-Public Use
  Company Number: None

PATIENT
  Sex: Male

DRUGS (2)
  1. VICODIN [Suspect]
     Indication: PAIN
     Dosage: 5/500 TWO Q 6 HRS PO
     Route: 048
  2. VICODIN [Suspect]
     Indication: QUADRIPLEGIA
     Dosage: 5/500 TWO Q 6 HRS PO
     Route: 048

REACTIONS (2)
  - DRUG INEFFECTIVE [None]
  - PHARMACEUTICAL PRODUCT COMPLAINT [None]
